FAERS Safety Report 4627895-0 (Version None)
Quarter: 2005Q2

REPORT INFORMATION
  Report Type: 
  Country: None (occurrence: None)
  Receive Date: 20050401
  Receipt Date: 20050325
  Transmission Date: 20051028
  Serious: Yes (Other)
  Sender: FDA-Public Use
  Company Number: 213011

PATIENT
  Age: 42 Year
  Sex: Female

DRUGS (6)
  1. XOLAIR [Suspect]
     Indication: ASTHMA
     Dosage: 225 MG, Q2W
     Dates: start: 20041124
  2. FORADIL [Concomitant]
  3. TILADE (NEDOCROMIL SODIUM) [Concomitant]
  4. QVAR (BECLOMETHASONE DIPROPIONATE) [Concomitant]
  5. PAXIL CR [Concomitant]
  6. WELLBUTRIN [Concomitant]

REACTIONS (3)
  - AMNESIA [None]
  - FATIGUE [None]
  - FEELING ABNORMAL [None]
